FAERS Safety Report 16501174 (Version 1)
Quarter: 2019Q3

REPORT INFORMATION
  Report Type: Spontaneous
  Country: US (occurrence: US)
  Receive Date: 20190628
  Receipt Date: 20190628
  Transmission Date: 20191004
  Serious: Yes (Life-Threatening, Disabling, Other)
  Sender: FDA-Public Use
  Company Number: None

PATIENT
  Age: 63 Year
  Sex: Female
  Weight: 103.5 kg

DRUGS (9)
  1. MULTIVITAMIN [Concomitant]
     Active Substance: VITAMINS
  2. FISHOIL [Concomitant]
  3. PROBIOTIC, [Concomitant]
  4. MEMANTINE 5MG [Concomitant]
  5. NICOTINIC B3, [Concomitant]
  6. ASPIRIN 81MG [Concomitant]
     Active Substance: ASPIRIN
  7. MULTIVITAMIN [Concomitant]
     Active Substance: VITAMINS
  8. QUETIAPINE EXTENDED RELEASE [Suspect]
     Active Substance: QUETIAPINE
     Indication: BIPOLAR DISORDER
     Dosage: ?          QUANTITY:1 TABLET(S);?
     Route: 048
     Dates: start: 20171220, end: 20181115
  9. ASHWAGANDHA, [Concomitant]

REACTIONS (3)
  - Drug hypersensitivity [None]
  - Rhabdomyolysis [None]
  - Gait disturbance [None]

NARRATIVE: CASE EVENT DATE: 20180501
